FAERS Safety Report 23798959 (Version 1)
Quarter: 2024Q2

REPORT INFORMATION
  Report Type: Spontaneous
  Country: US (occurrence: None)
  Receive Date: 20240427
  Receipt Date: 20240427
  Transmission Date: 20240716
  Serious: Yes (Hospitalization)
  Sender: FDA-Public Use
  Company Number: None

PATIENT
  Age: 61 Year
  Sex: Male
  Weight: 120 kg

DRUGS (1)
  1. CEPHALEXIN [Suspect]
     Active Substance: CEPHALEXIN
     Dosage: FREQUENCY : 3 TIMES A DAY;?
     Route: 048
     Dates: start: 20230301, end: 20230301

REACTIONS (4)
  - Angioedema [None]
  - Hyperhidrosis [None]
  - Swelling [None]
  - Rash [None]

NARRATIVE: CASE EVENT DATE: 20230301
